FAERS Safety Report 19641469 (Version 3)
Quarter: 2021Q3

REPORT INFORMATION
  Report Type: Spontaneous
  Country: AU (occurrence: AU)
  Receive Date: 20210731
  Receipt Date: 20210915
  Transmission Date: 20211014
  Serious: Yes (Other)
  Sender: FDA-Public Use
  Company Number: AU-ABBVIE-21K-008-4013669-00

PATIENT
  Age: 72 Year
  Sex: Female

DRUGS (2)
  1. DUODOPA [Suspect]
     Active Substance: CARBIDOPA\LEVODOPA
     Indication: PARKINSON^S DISEASE
     Dosage: 100 ML GEL CASSETTE, 16HRS
     Route: 050
     Dates: start: 20180306
  2. DUODOPA [Suspect]
     Active Substance: CARBIDOPA\LEVODOPA

REACTIONS (6)
  - Intussusception [Unknown]
  - Device kink [Unknown]
  - Bezoar [Unknown]
  - Intussusception [Unknown]
  - Device kink [Unknown]
  - Bezoar [Unknown]

NARRATIVE: CASE EVENT DATE: 202107
